FAERS Safety Report 18110171 (Version 13)
Quarter: 2021Q4

REPORT INFORMATION
  Report Type: Report from Study
  Country: US (occurrence: US)
  Receive Date: 20200804
  Receipt Date: 20211002
  Transmission Date: 20220303
  Serious: Yes (Hospitalization, Other)
  Sender: FDA-Public Use
  Company Number: US-MALLINCKRODT-T202001377

PATIENT
  Age: 51 Year
  Sex: Female
  Weight: 99 kg

DRUGS (8)
  1. CORTICOTROPIN [Suspect]
     Active Substance: CORTICOTROPIN
     Indication: Sarcoidosis
     Dosage: UNK
     Route: 065
     Dates: start: 201907
  2. CORTICOTROPIN [Suspect]
     Active Substance: CORTICOTROPIN
     Dosage: 80 UNITS EVERY OTHER WEEK
     Route: 065
     Dates: start: 202007, end: 2020
  3. CORTICOTROPIN [Suspect]
     Active Substance: CORTICOTROPIN
     Dosage: 80 UNITS, ONCE PER WEEK
     Route: 065
     Dates: start: 2020, end: 20210306
  4. CORTICOTROPIN [Suspect]
     Active Substance: CORTICOTROPIN
     Dosage: UNK
     Route: 065
     Dates: start: 202105
  5. REMICADE [Concomitant]
     Active Substance: INFLIXIMAB
     Indication: Product used for unknown indication
     Dosage: UNK
     Route: 065
  6. REMICADE [Concomitant]
     Active Substance: INFLIXIMAB
     Dosage: UNK (DOSE DECREASED)
     Route: 065
     Dates: start: 2020
  7. LISINOPRIL [Concomitant]
     Active Substance: LISINOPRIL
     Indication: Blood pressure abnormal
     Dosage: UNKNOWN
     Route: 065
  8. LISINOPRIL [Concomitant]
     Active Substance: LISINOPRIL
     Indication: Cardiac disorder

REACTIONS (33)
  - Bronchitis [Unknown]
  - Diabetes mellitus [Recovering/Resolving]
  - Urinary tract infection [Not Recovered/Not Resolved]
  - Blindness unilateral [Unknown]
  - Cerebrovascular accident [Unknown]
  - Hypotension [Recovering/Resolving]
  - Carpal tunnel decompression [Unknown]
  - Carpal tunnel syndrome [Unknown]
  - Impaired gastric emptying [Unknown]
  - Cerebellar tumour [Not Recovered/Not Resolved]
  - Haemoglobin decreased [Unknown]
  - Gastrointestinal disorder [Unknown]
  - Eye pain [Not Recovered/Not Resolved]
  - Pain [Not Recovered/Not Resolved]
  - Urinary incontinence [Not Recovered/Not Resolved]
  - Asthenia [Unknown]
  - Gait disturbance [Unknown]
  - Visual impairment [Unknown]
  - Vision blurred [Recovered/Resolved]
  - Fall [Unknown]
  - Dizziness [Unknown]
  - Joint injury [Unknown]
  - Head injury [Unknown]
  - Spondylitis [Unknown]
  - Ligament sprain [Unknown]
  - Contusion [Unknown]
  - Balance disorder [Unknown]
  - Cough [Not Recovered/Not Resolved]
  - Nasopharyngitis [Not Recovered/Not Resolved]
  - Headache [Not Recovered/Not Resolved]
  - Malaise [Not Recovered/Not Resolved]
  - Peripheral swelling [Recovering/Resolving]
  - Product dose omission issue [Recovered/Resolved]

NARRATIVE: CASE EVENT DATE: 20190101
